FAERS Safety Report 22274438 (Version 1)
Quarter: 2023Q2

REPORT INFORMATION
  Report Type: Spontaneous
  Country: DE (occurrence: DE)
  Receive Date: 20230502
  Receipt Date: 20230502
  Transmission Date: 20230722
  Serious: Yes (Other)
  Sender: FDA-Public Use
  Company Number: DE-002147023-NVSC2023DE098541

PATIENT
  Sex: Female

DRUGS (3)
  1. GLYCOPYRROLATE [Suspect]
     Active Substance: GLYCOPYRROLATE
     Indication: Chronic obstructive pulmonary disease
     Dosage: 1 DOSAGE FORM, QD
     Route: 065
     Dates: start: 2018, end: 20230422
  2. BISOPROLOL [Concomitant]
     Active Substance: BISOPROLOL
     Indication: Cardiac disorder
     Dosage: UNK
     Route: 065
  3. BISOPROLOL [Concomitant]
     Active Substance: BISOPROLOL
     Indication: Hypertension

REACTIONS (15)
  - Cataract [Unknown]
  - Swollen tongue [Unknown]
  - Lip swelling [Unknown]
  - Swelling face [Unknown]
  - Muscle spasms [Unknown]
  - Panic attack [Recovered/Resolved]
  - Depression [Unknown]
  - Tremor [Recovered/Resolved]
  - Hypoaesthesia [Unknown]
  - Pituitary-dependent Cushing^s syndrome [Unknown]
  - Oedema peripheral [Unknown]
  - Hepatic cyst [Unknown]
  - Middle insomnia [Recovered/Resolved]
  - Asthenia [Unknown]
  - Fatigue [Unknown]
